FAERS Safety Report 6508239-6 (Version None)
Quarter: 2009Q4

REPORT INFORMATION
  Report Type: 
  Country: None (occurrence: None)
  Receive Date: 20091221
  Receipt Date: 20081211
  Transmission Date: 20100525
  Serious: No
  Sender: FDA-Public Use
  Company Number: US-ASTRAZENECA-2008UW27799

PATIENT
  Age: 52 Year
  Sex: Male
  Weight: 70.3 kg

DRUGS (3)
  1. CRESTOR [Suspect]
     Indication: BLOOD CHOLESTEROL INCREASED
     Route: 048
     Dates: start: 20080601
  2. ASPIRIN [Concomitant]
  3. FENOFIBRATE [Concomitant]

REACTIONS (1)
  - LIBIDO DECREASED [None]
